FAERS Safety Report 7724078-2 (Version None)
Quarter: 2011Q3

REPORT INFORMATION
  Report Type: 
  Country: None (occurrence: None)
  Receive Date: 20110829
  Receipt Date: 20110829
  Transmission Date: 20111222
  Serious: Yes (Death, Hospitalization)
  Sender: FDA-Public Use
  Company Number: GER/GER/10/0013267

PATIENT
  Age: 67 Year
  Sex: Male
  Weight: 92 kg

DRUGS (5)
  1. ACETYLSALICYLIC ACID SRT [Concomitant]
  2. METOPROLOL TARTRATE [Concomitant]
  3. ALLOPURINOL [Suspect]
     Indication: GOUT
     Dosage: 300 MG, 1 IN 1 D
  4. ENALAPRIL MALEATE [Concomitant]
  5. SIMVASTATIN [Concomitant]

REACTIONS (11)
  - DIARRHOEA [None]
  - TUBULOINTERSTITIAL NEPHRITIS [None]
  - TOXIC EPIDERMAL NECROLYSIS [None]
  - RENAL NECROSIS [None]
  - RENAL FAILURE ACUTE [None]
  - SEPSIS [None]
  - UROSEPSIS [None]
  - DRUG RASH WITH EOSINOPHILIA AND SYSTEMIC SYMPTOMS [None]
  - GASTROINTESTINAL INFECTION [None]
  - MULTI-ORGAN FAILURE [None]
  - GENERAL PHYSICAL HEALTH DETERIORATION [None]
